FAERS Safety Report 8914931 (Version 1)
Quarter: 2012Q4

REPORT INFORMATION
  Report Type: 
  Country: DE (occurrence: DE)
  Receive Date: 20121116
  Receipt Date: 20121116
  Transmission Date: 20130627
  Serious: Yes (Life-Threatening, Other)
  Sender: FDA-Public Use
  Company Number: DE-BRISTOL-MYERS SQUIBB COMPANY-17112541

PATIENT
  Age: 63 Year
  Sex: Male

DRUGS (6)
  1. ABILIFY [Suspect]
     Route: 048
  2. QUILONUM [Suspect]
     Dosage: Sep10-24May12-1350mg
25May12-28May12-1125mg
     Route: 048
     Dates: start: 201009
  3. TRIMETHOPRIM [Suspect]
     Indication: URINARY TRACT INFECTION
     Dosage: 2x960 mg
     Route: 048
     Dates: start: 20120526, end: 20120528
  4. AMLODIPINE [Suspect]
     Route: 048
  5. DELIX PLUS [Suspect]
     Route: 048
  6. PALIPERIDONE [Suspect]
     Route: 030

REACTIONS (5)
  - Toxicity to various agents [Recovering/Resolving]
  - Blood creatinine increased [Unknown]
  - Convulsion [Unknown]
  - Delirium [Unknown]
  - Urinary tract infection [None]
